FAERS Safety Report 5758819-0 (Version None)
Quarter: 2008Q2

REPORT INFORMATION
  Report Type: 
  Country: None (occurrence: None)
  Receive Date: 20080604
  Receipt Date: 20080520
  Transmission Date: 20081010
  Serious: Yes (Hospitalization)
  Sender: FDA-Public Use
  Company Number: NO-ROCHE-568197

PATIENT
  Sex: Male

DRUGS (1)
  1. XENICAL [Suspect]
     Indication: OBESITY
     Dosage: DOSAGE REGIMEN REPORTED AS 1X2.
     Route: 048
     Dates: start: 20080214, end: 20080516

REACTIONS (1)
  - ACUTE ABDOMEN [None]
